FAERS Safety Report 15359491 (Version 2)
Quarter: 2020Q2

REPORT INFORMATION
  Report Type: Spontaneous
  Country: DE (occurrence: DE)
  Receive Date: 20180907
  Receipt Date: 20200409
  Transmission Date: 20200713
  Serious: Yes (Other)
  Sender: FDA-Public Use
  Company Number: DE-TEVA-2018-DE-952060

PATIENT
  Age: 32 Year
  Sex: Female
  Weight: 56 kg

DRUGS (5)
  1. VOMEX A [Concomitant]
     Active Substance: DIMENHYDRINATE
     Indication: NAUSEA
     Route: 065
     Dates: start: 20170620, end: 20170718
  2. FOLIO FORTE [Concomitant]
     Active Substance: FOLIC ACID\VITAMINS
     Indication: PROPHYLAXIS OF NEURAL TUBE DEFECT
     Dosage: 0.8 [MG/D ]
     Route: 048
     Dates: start: 20170505, end: 20170607
  3. DIAZEPAM. [Concomitant]
     Active Substance: DIAZEPAM
     Indication: SCHIZOPHRENIA
     Dosage: 10 [MG/D ]
     Route: 048
     Dates: start: 20170505, end: 20180202
  4. NAUSEMA [Concomitant]
     Indication: NAUSEA
     Route: 048
     Dates: start: 20170620, end: 20170718
  5. OLANZAPINE. [Suspect]
     Active Substance: OLANZAPINE
     Indication: SCHIZOPHRENIA
     Dosage: 5 MILLIGRAM DAILY; 5 [MG/D ]
     Route: 048
     Dates: start: 20170505, end: 20180202

REACTIONS (2)
  - Gestational diabetes [Recovered/Resolved]
  - Maternal exposure during pregnancy [Unknown]
